FAERS Safety Report 25244486 (Version 1)
Quarter: 2025Q2

REPORT INFORMATION
  Report Type: Spontaneous
  Country: BR (occurrence: BR)
  Receive Date: 20250428
  Receipt Date: 20250428
  Transmission Date: 20250716
  Serious: Yes (Hospitalization, Other)
  Sender: ALKEM
  Company Number: BR-ALKEM LABORATORIES LIMITED-BR-ALKEM-2024-17559

PATIENT
  Age: 59 Year
  Sex: Male

DRUGS (2)
  1. AZATHIOPRINE [Suspect]
     Active Substance: AZATHIOPRINE
     Indication: Renal transplant
     Route: 065
  2. SIROLIMUS [Suspect]
     Active Substance: SIROLIMUS
     Indication: Renal transplant
     Route: 065

REACTIONS (5)
  - COVID-19 [Unknown]
  - Escherichia urinary tract infection [Unknown]
  - Escherichia sepsis [Unknown]
  - Bacterial endophthalmitis [Recovered/Resolved]
  - Urinary tract infection bacterial [Unknown]
